FAERS Safety Report 5700736-6 (Version None)
Quarter: 2008Q2

REPORT INFORMATION
  Report Type: 
  Country: None (occurrence: None)
  Receive Date: 20080409
  Receipt Date: 20080409
  Transmission Date: 20081010
  Serious: Yes (Other)
  Sender: FDA-Public Use
  Company Number: None

PATIENT
  Age: 39 Year
  Sex: Female
  Weight: 54.4316 kg

DRUGS (3)
  1. DIFLUCAN [Suspect]
     Indication: VULVOVAGINAL MYCOTIC INFECTION
     Dosage: SINGLE DOSE PO
     Route: 048
     Dates: start: 20080406, end: 20080406
  2. BETAMETHASONE IM [Concomitant]
  3. BENADRYL [Concomitant]

REACTIONS (3)
  - COUGH [None]
  - SWELLING FACE [None]
  - THROAT IRRITATION [None]
